FAERS Safety Report 6304702-1 (Version None)
Quarter: 2009Q3

REPORT INFORMATION
  Report Type: 
  Country: None (occurrence: None)
  Receive Date: 20090811
  Receipt Date: 20090804
  Transmission Date: 20100115
  Serious: Yes (Hospitalization)
  Sender: FDA-Public Use
  Company Number: A0781101A

PATIENT
  Age: 70 Year
  Sex: Female
  Weight: 92.5 kg

DRUGS (12)
  1. AVANDIA [Suspect]
     Dosage: 8MG PER DAY
     Route: 065
     Dates: start: 20030104, end: 20070201
  2. ISOSORBIDE MONONITRATE [Concomitant]
     Dosage: 30MG PER DAY
  3. FUROSEMIDE [Concomitant]
     Dosage: 20MG PER DAY
  4. GLIPIZIDE [Concomitant]
     Dosage: 10MG TWICE PER DAY
  5. PLAVIX [Concomitant]
     Dosage: 75MG PER DAY
     Route: 048
  6. METOPROLOL [Concomitant]
     Dosage: 25MG TWICE PER DAY
  7. ALTACE [Concomitant]
     Dosage: 2.5MG PER DAY
  8. ALBUTEROL [Concomitant]
  9. PREDNISONE [Concomitant]
     Dosage: 5MG PER DAY
  10. NEURONTIN [Concomitant]
     Dosage: 2400MG PER DAY
  11. QUININE [Concomitant]
     Dosage: 325MG PER DAY
  12. CELEBREX [Concomitant]

REACTIONS (4)
  - CARDIAC DISORDER [None]
  - CARDIAC FAILURE CONGESTIVE [None]
  - CEREBROVASCULAR ACCIDENT [None]
  - MYOCARDIAL ISCHAEMIA [None]
